FAERS Safety Report 20385124 (Version 1)
Quarter: 2022Q1

REPORT INFORMATION
  Report Type: Spontaneous
  Country: US (occurrence: US)
  Receive Date: 20220127
  Receipt Date: 20220127
  Transmission Date: 20220423
  Serious: No
  Sender: FDA-Public Use
  Company Number: US-PERRIGO-21US006395

PATIENT
  Age: 16 Year
  Sex: Male
  Weight: 77.10 kg

DRUGS (2)
  1. OMEPRAZOLE [Suspect]
     Active Substance: OMEPRAZOLE
     Indication: Nausea
     Dosage: ONE OMEPRAZOLE DR 20 MG TABLET TWICE DAILY
     Route: 050
     Dates: start: 20210410, end: 20210509
  2. OMEPRAZOLE [Suspect]
     Active Substance: OMEPRAZOLE
     Indication: Nausea
     Dosage: ONE TABLET IN THE MORNING
     Route: 050
     Dates: start: 20210510, end: 20210510

REACTIONS (6)
  - Diarrhoea [Not Recovered/Not Resolved]
  - Incorrect product administration duration [Recovered/Resolved]
  - Off label use [Recovered/Resolved]
  - Product administered to patient of inappropriate age [Recovered/Resolved]
  - Incorrect dose administered [Recovered/Resolved]
  - Inappropriate schedule of product administration [Recovered/Resolved]

NARRATIVE: CASE EVENT DATE: 20210410
